FAERS Safety Report 13340690 (Version 1)
Quarter: 2017Q1

REPORT INFORMATION
  Report Type: Spontaneous
  Country: US (occurrence: US)
  Receive Date: 20170316
  Receipt Date: 20170316
  Transmission Date: 20170428
  Serious: No
  Sender: FDA-Public Use
  Company Number: US-ASTRAZENECA-2017SE25496

PATIENT
  Age: 913 Month
  Sex: Male

DRUGS (1)
  1. SYMBICORT [Suspect]
     Active Substance: BUDESONIDE\FORMOTEROL FUMARATE DIHYDRATE
     Indication: CHRONIC OBSTRUCTIVE PULMONARY DISEASE
     Dosage: TWO PUFFS TWICE A DAY
     Route: 055
     Dates: start: 201608

REACTIONS (7)
  - Dyspnoea [Unknown]
  - Device issue [Recovering/Resolving]
  - Lung infection [Not Recovered/Not Resolved]
  - Cough [Not Recovered/Not Resolved]
  - Intentional device misuse [Unknown]
  - Asthenia [Not Recovered/Not Resolved]
  - Off label use of device [Unknown]

NARRATIVE: CASE EVENT DATE: 201702
